FAERS Safety Report 4734698-5 (Version None)
Quarter: 2005Q3

REPORT INFORMATION
  Report Type: 
  Country: None (occurrence: None)
  Receive Date: 20050804
  Receipt Date: 20050111
  Transmission Date: 20060218
  Serious: Yes (Hospitalization)
  Sender: FDA-Public Use
  Company Number: FR-MERCK-0501FRA00030

PATIENT
  Age: 60 Year
  Sex: Female
  Weight: 92 kg

DRUGS (2)
  1. VIOXX [Suspect]
     Indication: ARTHRALGIA
     Route: 048
     Dates: start: 20021201, end: 20030101
  2. DICLOFENAC SODIUM AND MISOPROSTOL [Suspect]
     Indication: ARTHRALGIA
     Route: 048
     Dates: end: 20021201

REACTIONS (1)
  - GLOMERULONEPHRITIS [None]
